FAERS Safety Report 7979652-5 (Version None)
Quarter: 2011Q4

REPORT INFORMATION
  Report Type: 
  Country: None (occurrence: None)
  Receive Date: 20111213
  Receipt Date: 20111213
  Transmission Date: 20120403
  Serious: Yes (Hospitalization)
  Sender: FDA-Public Use
  Company Number: None

PATIENT
  Sex: Male
  Weight: 108.8 kg

DRUGS (3)
  1. ELOXATIN [Suspect]
     Dosage: 155 MG
  2. BEVACIZUMAB (RHUMAB VEGF) [Suspect]
     Dosage: 543 MG
  3. IRINOTECAN HCL [Suspect]
     Dosage: 285 MG

REACTIONS (11)
  - DIARRHOEA [None]
  - THROMBOCYTOPENIA [None]
  - SMALL INTESTINAL OBSTRUCTION [None]
  - ANAEMIA [None]
  - NEUTROPENIA [None]
  - NAUSEA [None]
  - HYPOTENSION [None]
  - METASTASES TO LIVER [None]
  - DECREASED APPETITE [None]
  - DEHYDRATION [None]
  - SEPSIS [None]
